FAERS Safety Report 14472379 (Version 4)
Quarter: 2019Q1

REPORT INFORMATION
  Report Type: Report from Study
  Country: JP (occurrence: JP)
  Receive Date: 20180131
  Receipt Date: 20190331
  Transmission Date: 20190417
  Serious: Yes (Hospitalization, Other)
  Sender: FDA-Public Use
  Company Number: JP-AMGEN-JPNCT2018013371

PATIENT
  Age: 78 Year
  Sex: Male
  Weight: 57 kg

DRUGS (25)
  1. SAMTIREL [Concomitant]
     Active Substance: ATOVAQUONE
     Dosage: 750-1500 MG, QWK
     Route: 048
     Dates: start: 20170615, end: 20170829
  2. DARBEPOETIN ALFA [Suspect]
     Active Substance: DARBEPOETIN ALFA
     Dosage: 120 MICROGRAM, Q2WK
     Route: 058
     Dates: start: 20170207, end: 20170920
  3. ALFACALCIDOL [Concomitant]
     Active Substance: ALFACALCIDOL
     Dosage: 0.5 MICROGRAM
     Route: 048
  4. FLOMOX [Concomitant]
     Dosage: 300 MILLIGRAM
     Dates: start: 20170118, end: 20170121
  5. RECALBON [Concomitant]
     Active Substance: MINODRONIC ACID
     Dosage: 50 MILLIGRAM
     Route: 048
     Dates: end: 20170221
  6. GLAKAY [Concomitant]
     Active Substance: MENATETRENONE
     Indication: MYELODYSPLASTIC SYNDROME
     Dosage: 45 MILLIGRAM
     Route: 048
     Dates: start: 20161220, end: 20180717
  7. CLARITH [Concomitant]
     Active Substance: CLARITHROMYCIN
     Indication: BLEPHARITIS
     Dosage: 400 MILLIGRAM
     Route: 048
     Dates: start: 20170306, end: 20170310
  8. DARBEPOETIN ALFA [Suspect]
     Active Substance: DARBEPOETIN ALFA
     Indication: MYELODYSPLASTIC SYNDROME
     Dosage: 120 MICROGRAM, QWK
     Route: 058
     Dates: start: 20161220, end: 20161227
  9. AVOLVE [Concomitant]
     Active Substance: DUTASTERIDE
     Indication: BENIGN PROSTATIC HYPERPLASIA
     Dosage: 0.5 MILLIGRAM
     Route: 048
  10. GENINAX [Concomitant]
     Active Substance: GARENOXACIN MESYLATE
     Indication: PNEUMONIA
     Dosage: 400 MILLIGRAM
     Route: 048
     Dates: start: 20170823, end: 20170829
  11. DAIPHEN [Concomitant]
     Active Substance: SULFAMETHOXAZOLE\TRIMETHOPRIM
     Dosage: 0.005-0.5 G, QWK
     Route: 048
     Dates: start: 20171018, end: 20180912
  12. NEORAL [Concomitant]
     Active Substance: CYCLOSPORINE
     Indication: POLYCHONDRITIS
     Dosage: 50 MILLIGRAM
     Route: 048
     Dates: start: 20171004, end: 20180221
  13. FEBURIC [Concomitant]
     Active Substance: FEBUXOSTAT
     Indication: HYPERURICAEMIA
     Dosage: 10 MILLIGRAM
     Route: 048
  14. DARBEPOETIN ALFA [Suspect]
     Active Substance: DARBEPOETIN ALFA
     Dosage: 180 MICROGRAM, Q2WK
     Route: 058
     Dates: start: 20180124, end: 20180711
  15. LIXIANA [Concomitant]
     Active Substance: EDOXABAN TOSYLATE
     Indication: TRANSIENT ISCHAEMIC ATTACK
     Dosage: 30 MILLIGRAM
     Route: 048
     Dates: start: 20180116, end: 20180727
  16. DARBEPOETIN ALFA [Suspect]
     Active Substance: DARBEPOETIN ALFA
     Dosage: 180 MICROGRAM, Q2WK
     Route: 058
     Dates: start: 20171004, end: 20171018
  17. DARBEPOETIN ALFA [Suspect]
     Active Substance: DARBEPOETIN ALFA
     Dosage: 120 MICROGRAM
     Route: 058
     Dates: start: 20171101, end: 20171101
  18. PREDNISOLONE. [Suspect]
     Active Substance: PREDNISOLONE
     Indication: POLYCHONDRITIS
     Dosage: 6.5-10 MG, UNK
     Route: 048
  19. JADENU [Concomitant]
     Active Substance: DEFERASIROX
     Dosage: 90 MILLIGRAM
     Route: 048
     Dates: start: 20180221, end: 20180404
  20. LOXONIN [Concomitant]
     Active Substance: LOXOPROFEN SODIUM
     Indication: POLYCHONDRITIS
     Dosage: 60 MG, UNK
     Route: 048
     Dates: start: 20180613
  21. DARBEPOETIN ALFA [Suspect]
     Active Substance: DARBEPOETIN ALFA
     Dosage: 120 MICROGRAM, QWK
     Route: 058
     Dates: start: 20170110, end: 20170124
  22. DARBEPOETIN ALFA [Suspect]
     Active Substance: DARBEPOETIN ALFA
     Dosage: 180 MICROGRAM
     Route: 058
     Dates: start: 20171115, end: 20171115
  23. DARBEPOETIN ALFA [Suspect]
     Active Substance: DARBEPOETIN ALFA
     Dosage: 120 MICROGRAM, Q2WK
     Route: 058
     Dates: start: 20171129, end: 20180110
  24. HARNAL [Concomitant]
     Active Substance: TAMSULOSIN HYDROCHLORIDE
     Indication: BENIGN PROSTATIC HYPERPLASIA
     Dosage: 0.2 MILLIGRAM
     Route: 048
  25. COLCHICINE. [Concomitant]
     Active Substance: COLCHICINE
     Indication: POLYCHONDRITIS
     Dosage: 0.5 MILLIGRAM
     Route: 048
     Dates: start: 20170511, end: 20170823

REACTIONS (6)
  - Transient ischaemic attack [Recovered/Resolved]
  - Pneumonia [Recovered/Resolved]
  - Rash [Not Recovered/Not Resolved]
  - Myelodysplastic syndrome transformation [Recovering/Resolving]
  - Pyrexia [Recovered/Resolved]
  - Blepharitis [Recovered/Resolved]

NARRATIVE: CASE EVENT DATE: 20170306
